FAERS Safety Report 16431396 (Version 2)
Quarter: 2020Q1

REPORT INFORMATION
  Report Type: Report from Study
  Country: UG (occurrence: UG)
  Receive Date: 20190614
  Receipt Date: 20200305
  Transmission Date: 20200409
  Serious: Yes (Congenital Anomaly)
  Sender: FDA-Public Use
  Company Number: UG-VIIV HEALTHCARE LIMITED-UG2018GSK161216

PATIENT
  Weight: 3.2 kg

DRUGS (3)
  1. DOLUTEGRAVIR [Suspect]
     Active Substance: DOLUTEGRAVIR
     Indication: HIV INFECTION
     Dosage: UNK
     Dates: start: 20180711
  2. NEVIRAPINE. [Concomitant]
     Active Substance: NEVIRAPINE
     Dosage: 1.5 ML, UNK
     Dates: start: 20180725, end: 201810
  3. COTRIMOXAZOLE [Concomitant]
     Active Substance: SULFAMETHOXAZOLE\TRIMETHOPRIM
     Dosage: 120 MG, UNK
     Dates: start: 20180724, end: 20181126

REACTIONS (1)
  - Umbilical hernia [Recovered/Resolved]

NARRATIVE: CASE EVENT DATE: 20180812
